FAERS Safety Report 16645828 (Version 1)
Quarter: 2019Q3

REPORT INFORMATION
  Report Type: Spontaneous
  Country: US (occurrence: US)
  Receive Date: 20190730
  Receipt Date: 20190730
  Transmission Date: 20191004
  Serious: Yes (Hospitalization, Other)
  Sender: FDA-Public Use
  Company Number: US-MALLINCKRODT-T201905221

PATIENT
  Sex: Female

DRUGS (1)
  1. FENTANYL TRANSDERMAL SYSTEM [Suspect]
     Active Substance: FENTANYL
     Indication: PAIN
     Dosage: 100 MCG/HOUR, 3 PATCHES EVERY 72 HOURS
     Route: 062

REACTIONS (14)
  - Spinal compression fracture [Unknown]
  - Oesophageal disorder [Unknown]
  - Joint dislocation [Unknown]
  - Drug screen negative [Unknown]
  - Dysgraphia [Unknown]
  - Gouty arthritis [Unknown]
  - Product adhesion issue [Unknown]
  - Stevens-Johnson syndrome [Unknown]
  - Small intestinal obstruction [Unknown]
  - Gastrectomy [Unknown]
  - Oesophagectomy [Unknown]
  - Neoplasm malignant [Unknown]
  - Gastrointestinal disorder [Unknown]
  - Stress cardiomyopathy [Unknown]
